FAERS Safety Report 5612607-4 (Version None)
Quarter: 2008Q1

REPORT INFORMATION
  Report Type: 
  Country: None (occurrence: None)
  Receive Date: 20080204
  Receipt Date: 20080122
  Transmission Date: 20080703
  Serious: Yes (Other)
  Sender: FDA-Public Use
  Company Number: B0500010A

PATIENT
  Age: 67 Year
  Sex: Female
  Weight: 58 kg

DRUGS (6)
  1. SERETIDE [Suspect]
     Route: 055
     Dates: start: 20010601
  2. STEROIDS [Suspect]
     Indication: DRUG USE FOR UNKNOWN INDICATION
     Route: 065
  3. FLIXONASE [Concomitant]
     Route: 065
  4. NEXIUM [Concomitant]
     Route: 065
  5. SINGULAIR [Concomitant]
  6. VENTOLIN [Concomitant]
     Route: 065

REACTIONS (5)
  - ACTH STIMULATION TEST ABNORMAL [None]
  - ADDISON'S DISEASE [None]
  - BLOOD CORTISOL DECREASED [None]
  - CONTUSION [None]
  - SKIN ATROPHY [None]
